FAERS Safety Report 23152672 (Version 1)
Quarter: 2023Q4

REPORT INFORMATION
  Report Type: Spontaneous
  Country: US (occurrence: US)
  Receive Date: 20231107
  Receipt Date: 20231107
  Transmission Date: 20240110
  Serious: Yes (Hospitalization)
  Sender: FDA-Public Use
  Company Number: US-BRISTOL-MYERS SQUIBB COMPANY-2023-157557

PATIENT
  Age: 73 Year
  Sex: Male
  Weight: 79.38 kg

DRUGS (2)
  1. REVLIMID [Suspect]
     Active Substance: LENALIDOMIDE
     Indication: Plasma cell myeloma
     Dosage: 21 D ON 7 D OFF
     Route: 048
  2. VELCADE [Concomitant]
     Active Substance: BORTEZOMIB
     Indication: Chemotherapy
     Dates: end: 20231024

REACTIONS (4)
  - Fall [Unknown]
  - Nasal injury [Unknown]
  - Hypotension [Unknown]
  - Vertigo [Unknown]

NARRATIVE: CASE EVENT DATE: 20231027
